FAERS Safety Report 8305100-1 (Version None)
Quarter: 2012Q2

REPORT INFORMATION
  Report Type: 
  Country: None (occurrence: None)
  Receive Date: 20120423
  Receipt Date: 20120412
  Transmission Date: 20120825
  Serious: Yes (Other)
  Sender: FDA-Public Use
  Company Number: US-PERRIGO-12US003243

PATIENT
  Sex: Female
  Weight: 72.562 kg

DRUGS (1)
  1. APAP COUGH NITETIME COOL LIQ 666 [Suspect]
     Indication: COUGH
     Dosage: 30 ML, SINGLE
     Route: 048
     Dates: start: 20120412, end: 20120412

REACTIONS (4)
  - DIARRHOEA [None]
  - LOSS OF CONSCIOUSNESS [None]
  - VOMITING [None]
  - TREMOR [None]
